FAERS Safety Report 12081063 (Version 1)
Quarter: 2016Q1

REPORT INFORMATION
  Report Type: Spontaneous
  Country: FR (occurrence: FR)
  Receive Date: 20160216
  Receipt Date: 20160216
  Transmission Date: 20160526
  Serious: Yes (Other)
  Sender: FDA-Public Use
  Company Number: FR-PFIZER INC-2016086449

PATIENT
  Age: 54 Year
  Sex: Female

DRUGS (10)
  1. TIAPRIDAL [Suspect]
     Active Substance: TIAPRIDE HYDROCHLORIDE
     Indication: HYSTERECTOMY
     Dosage: UNK
     Dates: start: 2009
  2. PERFALGAN [Suspect]
     Active Substance: ACETAMINOPHEN
     Indication: HYSTERECTOMY
     Dosage: UNK
     Dates: start: 2009
  3. DALACINE [Suspect]
     Active Substance: CLINDAMYCIN HYDROCHLORIDE
     Indication: HYSTERECTOMY
     Dosage: UNK
     Dates: start: 2009
  4. GENTAMICIN. [Suspect]
     Active Substance: GENTAMICIN
     Indication: HYSTERECTOMY
     Dosage: UNK
     Dates: start: 2009
  5. MORPHINE [Suspect]
     Active Substance: MORPHINE
     Indication: HYSTERECTOMY
     Dosage: UNK
     Dates: start: 2009
  6. LOVENOX [Suspect]
     Active Substance: ENOXAPARIN SODIUM
     Indication: HYSTERECTOMY
     Dosage: UNK
     Dates: start: 2009
  7. NAROPEINE [Suspect]
     Active Substance: ROPIVACAINE HYDROCHLORIDE
     Indication: HYSTERECTOMY
     Dosage: UNK
     Dates: start: 2009
  8. DEBRIDAT [Suspect]
     Active Substance: TRIMEBUTINE MALEATE
     Indication: HYSTERECTOMY
     Dosage: UNK
     Dates: start: 2009
  9. PROFENID [Suspect]
     Active Substance: KETOPROFEN
     Indication: HYSTERECTOMY
     Dosage: UNK
     Dates: start: 2009
  10. ACUPAN [Suspect]
     Active Substance: NEFOPAM HYDROCHLORIDE
     Indication: HYSTERECTOMY
     Dosage: UNK
     Dates: start: 2009

REACTIONS (1)
  - Toxic skin eruption [Unknown]

NARRATIVE: CASE EVENT DATE: 2009
